FAERS Safety Report 16413239 (Version 2)
Quarter: 2019Q3

REPORT INFORMATION
  Report Type: Spontaneous
  Country: KR (occurrence: KR)
  Receive Date: 20190611
  Receipt Date: 20190729
  Transmission Date: 20191004
  Serious: Yes (Hospitalization)
  Sender: FDA-Public Use
  Company Number: KR-009507513-1905KOR008080

PATIENT
  Sex: Female

DRUGS (27)
  1. KEYTRUDA [Suspect]
     Active Substance: PEMBROLIZUMAB
     Dosage: QUANTITY:2, DAYS:1
     Dates: start: 20190528, end: 20190528
  2. KEYTRUDA [Suspect]
     Active Substance: PEMBROLIZUMAB
     Dosage: QUANTITY:2, DAYS:1
     Dates: start: 20190715, end: 20190715
  3. SODIUM CHLORIDE. [Concomitant]
     Active Substance: SODIUM CHLORIDE
     Dosage: QUANTITY:2, DAYS:1
     Dates: start: 20190508
  4. SODIUM CHLORIDE. [Concomitant]
     Active Substance: SODIUM CHLORIDE
     Dosage: QUANTITY:2, DAYS:1
     Dates: start: 20190508
  5. LYRICA [Concomitant]
     Active Substance: PREGABALIN
     Dosage: QUANTITY:1, DAYS:1
     Route: 048
     Dates: start: 20190524, end: 20190524
  6. LYRICA [Concomitant]
     Active Substance: PREGABALIN
     Dosage: QUANTITY:2, DAYS:28
     Route: 048
     Dates: start: 20190525, end: 20190525
  7. LYRICA [Concomitant]
     Active Substance: PREGABALIN
     Dosage: QUANTITY:2, DAYS:28
     Route: 048
     Dates: start: 20190619
  8. DUROGESIC [Concomitant]
     Active Substance: FENTANYL
     Dosage: 50MCG/H 21CM2, QUATITY 2, DAYS:10
     Dates: start: 20190508
  9. DUROGESIC [Concomitant]
     Active Substance: FENTANYL
     Dosage: 50MCG/H 21CM2, QUATITY 2, DAYS:15
     Dates: start: 20190619
  10. LYRICA [Concomitant]
     Active Substance: PREGABALIN
     Dosage: QUANTITY: 2, DAYS:21
     Route: 048
     Dates: start: 20190508
  11. TARGIN [Concomitant]
     Active Substance: NALOXONE HYDROCHLORIDE\OXYCODONE HYDROCHLORIDE
     Dosage: QUANTITY:1, DAYS:1
     Route: 048
     Dates: start: 20190525, end: 20190525
  12. DUROGESIC [Concomitant]
     Active Substance: FENTANYL
     Dosage: 50MCG/H 21CM2, QUATITY 2, DAYS:1
     Dates: start: 20190525, end: 20190525
  13. ABSTRAL [Concomitant]
     Active Substance: FENTANYL CITRATE
     Dosage: QUANTITY: 3, DAYS:25
     Dates: start: 20190528
  14. SODIUM CHLORIDE. [Concomitant]
     Active Substance: SODIUM CHLORIDE
     Dosage: QUANTITY:3, DAYS:1
     Dates: start: 20190528, end: 20190528
  15. TARGIN [Concomitant]
     Active Substance: NALOXONE HYDROCHLORIDE\OXYCODONE HYDROCHLORIDE
     Dosage: QUANTITY:2, DAYS:27
     Route: 048
     Dates: start: 20190526
  16. ABSTRAL [Concomitant]
     Active Substance: FENTANYL CITRATE
     Dosage: QUANTITY: 4, DAYS:14
     Dates: start: 20190508
  17. ABSTRAL [Concomitant]
     Active Substance: FENTANYL CITRATE
     Dosage: QUANTITY: 1, DAYS:1
     Dates: start: 20190528, end: 20190528
  18. SODIUM CHLORIDE. [Concomitant]
     Active Substance: SODIUM CHLORIDE
     Dosage: QUANTITY:1, DAYS:1
     Dates: start: 20190526, end: 20190526
  19. KEYTRUDA [Suspect]
     Active Substance: PEMBROLIZUMAB
     Indication: MESOTHELIOMA
     Dosage: QUANTITY:2, DAYS:1
     Dates: start: 20190508
  20. IRCODON [Concomitant]
     Active Substance: OXYCODONE HYDROCHLORIDE
     Dosage: QUANTITY:8, DAYS:21
     Route: 048
     Dates: start: 20190508
  21. TARGIN [Concomitant]
     Active Substance: NALOXONE HYDROCHLORIDE\OXYCODONE HYDROCHLORIDE
     Dosage: QUANTITY:3, DAYS:21
     Route: 048
     Dates: start: 20190508
  22. TARGIN [Concomitant]
     Active Substance: NALOXONE HYDROCHLORIDE\OXYCODONE HYDROCHLORIDE
     Dosage: QUANTITY:2, DAYS:25
     Route: 048
     Dates: start: 20190528
  23. SODIUM CHLORIDE. [Concomitant]
     Active Substance: SODIUM CHLORIDE
     Dosage: QUANTITY:1, DAYS:1
     Dates: start: 20190526, end: 20190526
  24. TARGIN [Concomitant]
     Active Substance: NALOXONE HYDROCHLORIDE\OXYCODONE HYDROCHLORIDE
     Dosage: QUANTITY:2, DAYS:28
     Route: 048
     Dates: start: 20190619
  25. KEYTRUDA [Suspect]
     Active Substance: PEMBROLIZUMAB
     Dosage: QUANTITY:2, DAYS:1
     Dates: start: 20190619
  26. ABSTRAL [Concomitant]
     Active Substance: FENTANYL CITRATE
     Dosage: QUANTITY: 2, DAYS:2
     Dates: start: 20190525, end: 20190526
  27. SODIUM CHLORIDE. [Concomitant]
     Active Substance: SODIUM CHLORIDE
     Dosage: QUANTITY:2, DAYS:2
     Dates: start: 20190526, end: 20190528

REACTIONS (2)
  - Adverse event [Unknown]
  - Product use in unapproved indication [Unknown]

NARRATIVE: CASE EVENT DATE: 20190508
